FAERS Safety Report 15946373 (Version 2)
Quarter: 2019Q1

REPORT INFORMATION
  Report Type: Spontaneous
  Country: US (occurrence: US)
  Receive Date: 20190212
  Receipt Date: 20190228
  Transmission Date: 20190417
  Serious: No
  Sender: FDA-Public Use
  Company Number: US-ASTRAZENECA-2019SE17787

PATIENT
  Age: 520 Month
  Sex: Male
  Weight: 102.1 kg

DRUGS (2)
  1. BYDUREON [Suspect]
     Active Substance: EXENATIDE
     Indication: TYPE 2 DIABETES MELLITUS
     Route: 058
     Dates: start: 2017, end: 2018
  2. BYDUREON BCISE [Suspect]
     Active Substance: EXENATIDE
     Indication: TYPE 2 DIABETES MELLITUS
     Route: 058
     Dates: start: 2018

REACTIONS (7)
  - Crying [Unknown]
  - Injection site haemorrhage [Unknown]
  - Product dose omission [Unknown]
  - Needle issue [Unknown]
  - Pain [Unknown]
  - Device leakage [Unknown]
  - Injection site nodule [Unknown]

NARRATIVE: CASE EVENT DATE: 201812
